FAERS Safety Report 13915754 (Version 1)
Quarter: 2017Q3

REPORT INFORMATION
  Report Type: Spontaneous
  Country: TW (occurrence: TW)
  Receive Date: 20170829
  Receipt Date: 20170829
  Transmission Date: 20171127
  Serious: Yes (Hospitalization)
  Sender: FDA-Public Use
  Company Number: PHHY2017TW125554

PATIENT
  Age: 44 Year
  Sex: Female

DRUGS (1)
  1. GILENYA [Suspect]
     Active Substance: FINGOLIMOD HYDROCHLORIDE
     Indication: MULTIPLE SCLEROSIS
     Dosage: 0.5 MG, QD
     Route: 048
     Dates: start: 20140312, end: 20170822

REACTIONS (5)
  - Urinary tract infection [Recovering/Resolving]
  - Muscular weakness [Unknown]
  - Malaise [Unknown]
  - Urinary retention [Unknown]
  - Pyrexia [Unknown]

NARRATIVE: CASE EVENT DATE: 20170820
